FAERS Safety Report 8069445-5 (Version None)
Quarter: 2012Q1

REPORT INFORMATION
  Report Type: 
  Country: None (occurrence: None)
  Receive Date: 20120119
  Receipt Date: 20120105
  Transmission Date: 20120608
  Serious: Yes (Other)
  Sender: FDA-Public Use
  Company Number: JPI-P-019144

PATIENT
  Age: 54 Year
  Sex: Female

DRUGS (2)
  1. XYREM [Suspect]
     Indication: NARCOLEPSY
     Dosage: 4.5 (2.25 GM 2 IN 1 D), ORAL; 9 GM ( 4.5 GMS, 2 IN 1 D) ORAL
     Route: 048
     Dates: start: 20111118
  2. XYREM [Suspect]
     Indication: NARCOLEPSY
     Dosage: 4.5 (2.25 GM 2 IN 1 D), ORAL; 9 GM ( 4.5 GMS, 2 IN 1 D) ORAL
     Route: 048
     Dates: start: 20041001

REACTIONS (4)
  - SINUSITIS [None]
  - INTERVERTEBRAL DISC PROTRUSION [None]
  - FALL [None]
  - CONVULSION [None]
